FAERS Safety Report 10963634 (Version 3)
Quarter: 2015Q2

REPORT INFORMATION
  Report Type: Report from Study
  Country: IL (occurrence: IL)
  Receive Date: 20150328
  Receipt Date: 20150513
  Transmission Date: 20150821
  Serious: Yes (Other)
  Sender: FDA-Public Use
  Company Number: IL-BIOGENIDEC-2015BI038878

PATIENT
  Age: 71 Year
  Sex: Female
  Weight: 65 kg

DRUGS (17)
  1. CARDILOC [Concomitant]
     Active Substance: BISOPROLOL FUMARATE
     Route: 048
     Dates: start: 20150129
  2. RANITIDINE [Concomitant]
     Active Substance: RANITIDINE\RANITIDINE HYDROCHLORIDE
     Route: 048
     Dates: start: 20150129
  3. SIMVASTATIN. [Concomitant]
     Active Substance: SIMVASTATIN
     Route: 048
     Dates: start: 20150129
  4. PAROXETINE [Concomitant]
     Active Substance: PAROXETINE\PAROXETINE HYDROCHLORIDE
     Indication: DEPRESSION
     Route: 048
     Dates: start: 20150217, end: 20150226
  5. BROTIZOLAM [Concomitant]
     Active Substance: BROTIZOLAM
     Route: 048
     Dates: start: 20150201
  6. LERCANIDIPINE [Concomitant]
     Active Substance: LERCANIDIPINE
     Route: 048
     Dates: start: 20150129
  7. LEVOTHYROXINE SODIUM. [Concomitant]
     Active Substance: LEVOTHYROXINE SODIUM
     Route: 048
     Dates: start: 20150129
  8. AVONEX [Suspect]
     Active Substance: INTERFERON BETA-1A
     Indication: MULTIPLE SCLEROSIS
     Route: 030
     Dates: start: 20040802
  9. DEXACORT [Concomitant]
     Active Substance: DEXAMETHASONE SODIUM PHOSPHATE
     Indication: FATIGUE
     Route: 048
     Dates: end: 20150224
  10. HYDROCHLOROTHIAZIDE. [Concomitant]
     Active Substance: HYDROCHLOROTHIAZIDE
     Route: 048
     Dates: start: 20150129
  11. EPANUTIN [Concomitant]
     Active Substance: PHENYTOIN SODIUM
     Indication: MENINGIOMA
     Route: 048
     Dates: start: 20150217, end: 20150222
  12. EPANUTIN [Concomitant]
     Active Substance: PHENYTOIN SODIUM
     Indication: MENINGIOMA
     Route: 048
     Dates: start: 20150223, end: 20150228
  13. DEXACORT [Concomitant]
     Active Substance: DEXAMETHASONE SODIUM PHOSPHATE
     Indication: MULTIPLE SCLEROSIS
     Route: 048
     Dates: end: 20150224
  14. ENALAPRIL [Concomitant]
     Active Substance: ENALAPRIL
     Route: 048
     Dates: start: 20150129
  15. ALPRAZOLAM. [Concomitant]
     Active Substance: ALPRAZOLAM
     Route: 048
     Dates: start: 20150217, end: 20150318
  16. VABEN [Concomitant]
     Active Substance: OXAZEPAM
     Route: 048
     Dates: start: 20150129, end: 20150227
  17. PROVIGIL [Concomitant]
     Active Substance: MODAFINIL
     Indication: FATIGUE
     Route: 048
     Dates: start: 20150207

REACTIONS (4)
  - Haemorrhagic stroke [Recovered/Resolved]
  - Osteoporosis [Unknown]
  - Vitamin D deficiency [Unknown]
  - Acute myocardial infarction [Recovered/Resolved]

NARRATIVE: CASE EVENT DATE: 200603
